FAERS Safety Report 16715800 (Version 1)
Quarter: 2019Q3

REPORT INFORMATION
  Report Type: Report from Study
  Country: IT (occurrence: IT)
  Receive Date: 20190819
  Receipt Date: 20190819
  Transmission Date: 20191005
  Serious: Yes (Hospitalization)
  Sender: FDA-Public Use
  Company Number: IT-PFIZER INC-2019353781

PATIENT
  Age: 79 Year
  Sex: Female

DRUGS (11)
  1. FUROSEMIDE. [Concomitant]
     Active Substance: FUROSEMIDE
     Dosage: 25 MG, UNK
  2. LEDERFOLIN [Concomitant]
     Active Substance: LEUCOVORIN CALCIUM
     Dosage: 7.5 MG, UNK
  3. CERCHIO [Concomitant]
     Active Substance: CETIRIZINE HYDROCHLORIDE
     Dosage: 10 MG, UNK
     Dates: start: 20180303, end: 20180305
  4. PIPERACILLIN SODIUM/TAZOBACTAM SODIUM [Concomitant]
     Dosage: 2 G, UNK
     Dates: start: 20180301, end: 20180306
  5. APROVEL [Concomitant]
     Active Substance: IRBESARTAN
     Dosage: 150 MG, UNK
  6. CARDICOR [Concomitant]
     Active Substance: BISOPROLOL
     Dosage: 1.25 MG, UNK
  7. CLEXANE T [Suspect]
     Active Substance: ENOXAPARIN SODIUM
     Indication: VENOUS THROMBOSIS LIMB
     Dosage: 1 DF, 1X/DAY
     Route: 058
     Dates: start: 20171001, end: 20180301
  8. CLEXANE [Suspect]
     Active Substance: ENOXAPARIN SODIUM
     Indication: VENOUS THROMBOSIS LIMB
     Dosage: 2 DF, 1X/DAY
     Route: 058
     Dates: start: 20180302, end: 20180307
  9. PANTORC [Concomitant]
     Active Substance: PANTOPRAZOLE SODIUM
  10. METHOTREXATE. [Suspect]
     Active Substance: METHOTREXATE
     Indication: RHEUMATOID ARTHRITIS
     Dosage: 15 MG, WEEKLY
     Dates: end: 20171130
  11. MYCOSTATIN [Concomitant]
     Active Substance: NYSTATIN
     Dosage: 100000 IU/ML, UNK
     Dates: start: 20180305, end: 20180313

REACTIONS (3)
  - Anaemia [Recovering/Resolving]
  - Petechiae [Recovering/Resolving]
  - Thrombocytopenia [Recovering/Resolving]

NARRATIVE: CASE EVENT DATE: 20180307
